FAERS Safety Report 4704028-3 (Version None)
Quarter: 2005Q2

REPORT INFORMATION
  Report Type: 
  Country: None (occurrence: None)
  Receive Date: 20050629
  Receipt Date: 20050614
  Transmission Date: 20051028
  Serious: No
  Sender: FDA-Public Use
  Company Number: 11604

PATIENT
  Age: 29 Year
  Sex: Female

DRUGS (7)
  1. FLUOROURACIL [Suspect]
     Indication: OVARIAN CANCER
     Dosage: 3500 MG/M2 TOTAL
  2. VINCRISTINE [Suspect]
     Indication: OVARIAN CANCER
     Dosage: 8 MG/M2 TOTAL
  3. MITOMYCIN [Suspect]
     Indication: OVARIAN CANCER
     Dosage: 80 MG/M2 TOTAL
  4. ETOPOSIDE [Suspect]
     Indication: OVARIAN CANCER
     Dosage: 750 MG/M2 TOTAL
  5. THIOTEPA [Suspect]
     Indication: OVARIAN CANCER
  6. MELPHALAN [Suspect]
     Indication: OVARIAN CANCER
     Dosage: 80 MG/M2 TOTAL
  7. CYCLOPHOSPHAMIDE [Suspect]
     Indication: OVARIAN CANCER
     Dosage: 3000 MG/M2 TOTAL

REACTIONS (1)
  - ACUTE PROMYELOCYTIC LEUKAEMIA [None]
